FAERS Safety Report 4816913-2 (Version None)
Quarter: 2005Q3

REPORT INFORMATION
  Report Type: 
  Country: None (occurrence: None)
  Receive Date: 20050929
  Receipt Date: 20050620
  Transmission Date: 20060218
  Serious: No
  Sender: FDA-Public Use
  Company Number: 05P-163-0303645-00

PATIENT
  Age: 53 Year
  Sex: Female
  Weight: 83.9154 kg

DRUGS (8)
  1. HUMIRA [Suspect]
     Indication: RHEUMATOID ARTHRITIS
     Dosage: 40 MG, 1 IN 2 WK, SUBCUTANEOUS; SEE IMAGE
     Route: 058
     Dates: start: 20040101, end: 20040101
  2. HUMIRA [Suspect]
     Indication: RHEUMATOID ARTHRITIS
     Dosage: 40 MG, 1 IN 2 WK, SUBCUTANEOUS; SEE IMAGE
     Route: 058
     Dates: start: 20050501
  3. GABAPENTIN [Concomitant]
  4. METHADONE [Concomitant]
  5. NORTRIPTYLINE HCL [Concomitant]
  6. ESTROGENS CONJUGATED [Concomitant]
  7. CLONAZEPAM [Concomitant]
  8. CEFTRIAXZONE [Concomitant]

REACTIONS (4)
  - PRURITUS GENERALISED [None]
  - RASH GENERALISED [None]
  - SINUSITIS [None]
  - URTICARIA [None]
